FAERS Safety Report 19472332 (Version 4)
Quarter: 2021Q3

REPORT INFORMATION
  Report Type: Report from Study
  Country: None (occurrence: ES)
  Receive Date: 20210629
  Receipt Date: 20210713
  Transmission Date: 20211014
  Serious: Yes (Hospitalization)
  Sender: FDA-Public Use
  Company Number: ES-ABBVIE-21K-144-3963420-00

PATIENT
  Age: 66 Year
  Sex: Male
  Weight: 73 kg

DRUGS (2)
  1. DUODOPA [Suspect]
     Active Substance: CARBIDOPA\LEVODOPA
     Indication: PARKINSON^S DISEASE
     Route: 050
     Dates: start: 20170321
  2. DUODOPA [Suspect]
     Active Substance: CARBIDOPA\LEVODOPA

REACTIONS (16)
  - Transaminases increased [Recovered/Resolved]
  - Breath odour [Not Recovered/Not Resolved]
  - Hyperventilation [Recovering/Resolving]
  - Chromaturia [Recovered/Resolved]
  - Diarrhoea [Recovered/Resolved]
  - Oral discharge [Not Recovered/Not Resolved]
  - Dehydration [Recovered/Resolved]
  - Apathy [Not Recovered/Not Resolved]
  - Erythema [Recovering/Resolving]
  - Drug ineffective [Unknown]
  - Urinary tract infection [Recovered/Resolved]
  - Gastritis [Not Recovered/Not Resolved]
  - Faecaloma [Unknown]
  - Muscle rigidity [Recovering/Resolving]
  - Constipation [Not Recovered/Not Resolved]
  - Flatulence [Not Recovered/Not Resolved]

NARRATIVE: CASE EVENT DATE: 202106
